FAERS Safety Report 4643526-8 (Version None)
Quarter: 2005Q2

REPORT INFORMATION
  Report Type: 
  Country: None (occurrence: None)
  Receive Date: 20050425
  Receipt Date: 20050412
  Transmission Date: 20051028
  Serious: Yes (Hospitalization)
  Sender: FDA-Public Use
  Company Number: JP-JNJFOC-20050204777

PATIENT
  Sex: Female
  Weight: 54.5 kg

DRUGS (15)
  1. REMICADE [Suspect]
     Route: 042
     Dates: start: 20031211
  2. REMICADE [Suspect]
     Route: 042
     Dates: start: 20031211
  3. REMICADE [Suspect]
     Route: 042
     Dates: start: 20031211
  4. REMICADE [Suspect]
     Route: 042
     Dates: start: 20031211
  5. REMICADE [Suspect]
     Route: 042
     Dates: start: 20031211
  6. REMICADE [Suspect]
     Route: 042
     Dates: start: 20031211
  7. REMICADE [Suspect]
     Route: 042
     Dates: start: 20031211
  8. REMICADE [Suspect]
     Indication: RHEUMATOID ARTHRITIS
     Route: 042
     Dates: start: 20031211
  9. METHOTREXATE [Concomitant]
  10. METHOTREXATE [Concomitant]
  11. FOLIC ACID [Concomitant]
  12. GASTER D [Concomitant]
     Indication: GASTRIC ULCER
  13. LOXONIN [Concomitant]
     Indication: RHEUMATOID ARTHRITIS
  14. FERROMIA [Concomitant]
  15. RIMATIL [Concomitant]

REACTIONS (2)
  - PNEUMONIA [None]
  - PULMONARY TUBERCULOSIS [None]
